FAERS Safety Report 22237493 (Version 2)
Quarter: 2023Q2

REPORT INFORMATION
  Report Type: Spontaneous
  Country: US (occurrence: None)
  Receive Date: 20230421
  Receipt Date: 20230428
  Transmission Date: 20230721
  Serious: Yes (Other)
  Sender: FDA-Public Use
  Company Number: US-Hikma Pharmaceuticals USA Inc.-US-H14001-23-01236

PATIENT
  Sex: Female

DRUGS (1)
  1. PREDNISONE [Suspect]
     Active Substance: PREDNISONE
     Indication: Product used for unknown indication
     Dosage: UNKNOWN
     Route: 065

REACTIONS (9)
  - Fatigue [Unknown]
  - Arthralgia [Unknown]
  - Blister [Unknown]
  - Systemic lupus erythematosus rash [Unknown]
  - Dermatitis bullous [Unknown]
  - Condition aggravated [Unknown]
  - Brain fog [Unknown]
  - Adverse event [Unknown]
  - Physical disability [Unknown]
